FAERS Safety Report 8935800 (Version 3)
Quarter: 2014Q1

REPORT INFORMATION
  Report Type: Spontaneous
  Country: US (occurrence: US)
  Receive Date: 20121130
  Receipt Date: 20140102
  Transmission Date: 20141002
  Serious: Yes (Hospitalization, Disabling, Other)
  Sender: FDA-Public Use
  Company Number: US-BAYER-2012-122415

PATIENT
  Age: 39 Year
  Sex: Female
  Weight: 55.33 kg

DRUGS (5)
  1. CIPRO [Suspect]
     Indication: POSTOPERATIVE FEVER
     Dosage: 500 MG, UNK
     Route: 048
     Dates: start: 20121112, end: 20121112
  2. CIPRO [Suspect]
     Indication: INFECTION
  3. IBUPROFEN [Suspect]
     Indication: POSTOPERATIVE FEVER
  4. LEVOQUIN [Suspect]
  5. CO ENZYME Q10 [Concomitant]
     Indication: ANTIOXIDANT THERAPY
     Dosage: 100 MG, QD

REACTIONS (27)
  - Neurotoxicity [None]
  - Heart rate increased [None]
  - Thinking abnormal [None]
  - Dysarthria [None]
  - Anxiety [None]
  - Myalgia [None]
  - Arthralgia [None]
  - Pain in extremity [None]
  - Asthenia [Not Recovered/Not Resolved]
  - Eye pain [Not Recovered/Not Resolved]
  - Vision blurred [Not Recovered/Not Resolved]
  - Tremor [Recovered/Resolved]
  - Hyponatraemia [Recovering/Resolving]
  - Neuropathy peripheral [Not Recovered/Not Resolved]
  - Tendon pain [Not Recovered/Not Resolved]
  - Gait disturbance [Not Recovered/Not Resolved]
  - Insomnia [Not Recovered/Not Resolved]
  - Muscle spasms [Not Recovered/Not Resolved]
  - Muscle twitching [Not Recovered/Not Resolved]
  - Feeling abnormal [Not Recovered/Not Resolved]
  - Convulsion [Not Recovered/Not Resolved]
  - Visual impairment [Not Recovered/Not Resolved]
  - Photopsia [Not Recovered/Not Resolved]
  - Coordination abnormal [Not Recovered/Not Resolved]
  - Abasia [Not Recovered/Not Resolved]
  - Autonomic nervous system imbalance [Not Recovered/Not Resolved]
  - Depression [Not Recovered/Not Resolved]
